FAERS Safety Report 5840607-8 (Version None)
Quarter: 2008Q3

REPORT INFORMATION
  Report Type: 
  Country: None (occurrence: None)
  Receive Date: 20080811
  Receipt Date: 20080801
  Transmission Date: 20090109
  Serious: Yes (Hospitalization)
  Sender: FDA-Public Use
  Company Number: JP-ASTRAZENECA-2008SE03756

PATIENT
  Age: 1 Year

DRUGS (1)
  1. BLOPRESS TABLETS 8 [Suspect]
     Indication: ACCIDENTAL EXPOSURE
     Route: 048
     Dates: start: 20080731, end: 20080731

REACTIONS (2)
  - ACCIDENTAL OVERDOSE [None]
  - TREMOR [None]
